FAERS Safety Report 9685058 (Version 2)
Quarter: 2013Q4

REPORT INFORMATION
  Report Type: Spontaneous
  Country: CA (occurrence: CA)
  Receive Date: 20131113
  Receipt Date: 20131223
  Transmission Date: 20140711
  Serious: Yes (Hospitalization, Other)
  Sender: FDA-Public Use
  Company Number: CA-JNJFOC-20131106137

PATIENT
  Age: 87 Year
  Sex: Male
  Weight: 83 kg

DRUGS (7)
  1. XARELTO [Suspect]
     Indication: THROMBOSIS PROPHYLAXIS
     Route: 048
     Dates: start: 20130114, end: 20130128
  2. XARELTO [Suspect]
     Indication: HIP ARTHROPLASTY
     Route: 048
     Dates: start: 20130114, end: 20130128
  3. ACETAMINOPHEN [Concomitant]
     Route: 065
  4. SENNA [Concomitant]
     Route: 065
  5. CITALOPRAM [Concomitant]
     Route: 065
  6. RABEPRAZOLE [Concomitant]
     Route: 065
  7. METOPROLOL [Concomitant]
     Route: 065

REACTIONS (3)
  - Pain [Unknown]
  - Pulmonary embolism [Unknown]
  - Hypoxia [Unknown]
